FAERS Safety Report 19497827 (Version 2)
Quarter: 2021Q3

REPORT INFORMATION
  Report Type: Report from Study
  Country: US (occurrence: US)
  Receive Date: 20210706
  Receipt Date: 20210713
  Transmission Date: 20211014
  Serious: Yes (Death, Other)
  Sender: FDA-Public Use
  Company Number: US-EISAI MEDICAL RESEARCH-EC-2021-095635

PATIENT
  Age: 69 Year
  Sex: Male

DRUGS (4)
  1. LASIX [Concomitant]
     Active Substance: FUROSEMIDE
  2. ASPIRIN. [Concomitant]
     Active Substance: ASPIRIN
  3. LENVIMA [Suspect]
     Active Substance: LENVATINIB
     Indication: RENAL CANCER
     Route: 048
     Dates: start: 20210211, end: 2021
  4. CALCITRIOL. [Concomitant]
     Active Substance: CALCITRIOL

REACTIONS (4)
  - Intestinal perforation [Fatal]
  - Acute kidney injury [Unknown]
  - Dyspnoea [Unknown]
  - Gallbladder rupture [Fatal]

NARRATIVE: CASE EVENT DATE: 202106
